FAERS Safety Report 8609011-3 (Version None)
Quarter: 2012Q3

REPORT INFORMATION
  Report Type: 
  Country: None (occurrence: None)
  Receive Date: 20120821
  Receipt Date: 20120816
  Transmission Date: 20120928
  Serious: Yes (Hospitalization)
  Sender: FDA-Public Use
  Company Number: JP-GLAXOSMITHKLINE-B0777825A

PATIENT
  Sex: Male
  Weight: 61 kg

DRUGS (12)
  1. DILTIAZEM HCL [Concomitant]
     Dosage: 200MG PER DAY
     Route: 048
  2. CLARITIN [Concomitant]
     Route: 048
  3. DUTASTERIDE [Suspect]
     Indication: BENIGN PROSTATIC HYPERPLASIA
     Dosage: .5MG PER DAY
     Route: 048
     Dates: start: 20110727, end: 20111129
  4. ALLEGRA [Concomitant]
     Route: 048
  5. TAMSULOSIN HYDROCHLORIDE [Concomitant]
     Route: 048
  6. LIVALO [Concomitant]
     Dosage: 2MG PER DAY
     Route: 048
  7. SEDAGASTON [Concomitant]
     Route: 048
  8. NITRAZEPAM [Concomitant]
     Route: 048
  9. OMEPRAZOLE [Concomitant]
     Dosage: 20MG PER DAY
     Route: 048
  10. COLONEL [Concomitant]
     Route: 048
  11. PLAVIX [Concomitant]
     Dosage: 75MG PER DAY
     Route: 048
  12. MAGMITT [Concomitant]
     Route: 048

REACTIONS (6)
  - PYREXIA [None]
  - HYPERSENSITIVITY [None]
  - HEPATIC ENZYME INCREASED [None]
  - HEPATIC FUNCTION ABNORMAL [None]
  - PRURITUS [None]
  - DRUG-INDUCED LIVER INJURY [None]
